FAERS Safety Report 16179036 (Version 2)
Quarter: 2020Q1

REPORT INFORMATION
  Report Type: Spontaneous
  Country: GB (occurrence: GB)
  Receive Date: 20190410
  Receipt Date: 20200123
  Transmission Date: 20200409
  Serious: Yes (Death, Other)
  Sender: FDA-Public Use
  Company Number: PHHY2019GB076570

PATIENT
  Age: 43 Year
  Sex: Female

DRUGS (4)
  1. ETOPOSIDE. [Suspect]
     Active Substance: ETOPOSIDE
     Indication: GESTATIONAL TROPHOBLASTIC TUMOUR
     Dosage: ONE HIGH UNSPECIFIED DOSE
     Route: 065
  2. CARBOPLATIN. [Suspect]
     Active Substance: CARBOPLATIN
     Indication: GESTATIONAL TROPHOBLASTIC TUMOUR
     Dosage: ONE HIGH UNSPECIFIED DOSE
     Route: 065
  3. ETOPOSIDE. [Suspect]
     Active Substance: ETOPOSIDE
     Dosage: INTERVAL BETWEEN HIGH-DOSE CHEMOTHERAPY COURSES WAS 53 DAYS
     Route: 065
  4. CARBOPLATIN. [Suspect]
     Active Substance: CARBOPLATIN
     Dosage: INTERVAL BETWEEN HIGH-DOSE CHEMOTHERAPY COURSES WAS 53 DAYS
     Route: 065

REACTIONS (2)
  - Maternal exposure during pregnancy [Unknown]
  - Haematotoxicity [Fatal]
